FAERS Safety Report 7364670-0 (Version None)
Quarter: 2011Q1

REPORT INFORMATION
  Report Type: 
  Country: None (occurrence: None)
  Receive Date: 20110321
  Receipt Date: 20110222
  Transmission Date: 20110831
  Serious: No
  Sender: FDA-Public Use
  Company Number: US-BAYER-2011-017724

PATIENT
  Sex: Female
  Weight: 11.338 kg

DRUGS (1)
  1. ALEVE (CAPLET) [Suspect]
     Indication: ACCIDENTAL DRUG INTAKE BY CHILD
     Dosage: 1 DF, ONCE
     Route: 048
     Dates: start: 20110222

REACTIONS (1)
  - NO ADVERSE EVENT [None]
